FAERS Safety Report 8398512-1 (Version None)
Quarter: 2012Q2

REPORT INFORMATION
  Report Type: 
  Country: None (occurrence: None)
  Receive Date: 20120531
  Receipt Date: 20120523
  Transmission Date: 20120825
  Serious: Yes (Death, Hospitalization)
  Sender: FDA-Public Use
  Company Number: US-ALEXION-A201200879

PATIENT
  Sex: Male
  Weight: 81 kg

DRUGS (3)
  1. SOLIRIS [Suspect]
     Indication: PAROXYSMAL NOCTURNAL HAEMOGLOBINURIA
     Dosage: 600 MG, QW
     Route: 042
     Dates: start: 20090618, end: 20090701
  2. PERCOCET [Concomitant]
     Indication: PAIN
     Dosage: 5/325, PRN
     Route: 048
     Dates: end: 20120505
  3. SOLIRIS [Suspect]
     Dosage: 900 MG, Q2W
     Route: 042
     Dates: start: 20090716, end: 20120412

REACTIONS (2)
  - DEATH [None]
  - CATHETER SITE INFECTION [None]
